FAERS Safety Report 4395389-6 (Version None)
Quarter: 2004Q3

REPORT INFORMATION
  Report Type: 
  Country: None (occurrence: None)
  Receive Date: 20040707
  Receipt Date: 20040622
  Transmission Date: 20050211
  Serious: Yes (Hospitalization, Other)
  Sender: FDA-Public Use
  Company Number: DE-2004-025318

PATIENT
  Age: 35 Year
  Sex: Female
  Weight: 57 kg

DRUGS (4)
  1. BETAFERON (INTERFERON BETA -1B) INJECTION, 250 UG [Suspect]
     Indication: MULTIPLE SCLEROSIS
     Dosage: 8 MIU, EVERY 2 D, SUBCUTANEOUS
     Route: 058
     Dates: start: 20000517, end: 20040422
  2. URBASON [Concomitant]
  3. RANITIDIN (RANITIDINE HYDROCHLORIDE) [Concomitant]
  4. VIGANTOLETTEN ^BAYER^ [Concomitant]

REACTIONS (7)
  - ARTHRITIS [None]
  - AUTOIMMUNE DISORDER [None]
  - AUTOIMMUNE HEPATITIS [None]
  - HEPATOMEGALY [None]
  - MULTIPLE SCLEROSIS RELAPSE [None]
  - NIGHT SWEATS [None]
  - WEIGHT DECREASED [None]
